FAERS Safety Report 8600127-4 (Version None)
Quarter: 2012Q3

REPORT INFORMATION
  Report Type: 
  Country: None (occurrence: None)
  Receive Date: 20120817
  Receipt Date: 20120814
  Transmission Date: 20120928
  Serious: Yes (Other)
  Sender: FDA-Public Use
  Company Number: US-AMGEN-USASP2012051267

PATIENT
  Sex: Female

DRUGS (2)
  1. CISPLATIN [Concomitant]
     Dosage: UNK UNK, QWK
  2. XGEVA [Suspect]
     Indication: PROPHYLAXIS
     Dosage: 120 MG, Q4WK
     Dates: start: 20120101, end: 20120101

REACTIONS (2)
  - HIP FRACTURE [None]
  - PAIN IN JAW [None]
